FAERS Safety Report 18322634 (Version 1)
Quarter: 2020Q3

REPORT INFORMATION
  Report Type: Spontaneous
  Country: US (occurrence: US)
  Receive Date: 20200928
  Receipt Date: 20200928
  Transmission Date: 20201103
  Serious: Yes (Hospitalization)
  Sender: FDA-Public Use
  Company Number: None

PATIENT
  Age: 65 Year
  Sex: Male

DRUGS (5)
  1. EDARDBI [Concomitant]
     Dates: start: 20170109
  2. HUMIRA [Suspect]
     Active Substance: ADALIMUMAB
     Indication: RHEUMATOID ARTHRITIS
     Dosage: ?          OTHER FREQUENCY:Q3WKS;?
     Route: 058
     Dates: start: 20131210
  3. HYDROXCHLORAT [Concomitant]
     Dates: start: 20160413
  4. HUMIRA [Suspect]
     Active Substance: ADALIMUMAB
     Indication: POLYARTHRITIS
     Dosage: ?          OTHER FREQUENCY:Q3WKS;?
     Route: 058
     Dates: start: 20131210
  5. PROBIOTIC [Concomitant]
     Active Substance: PROBIOTICS NOS
     Dates: start: 20180809

REACTIONS (1)
  - Skin cancer [None]

NARRATIVE: CASE EVENT DATE: 20200914
